FAERS Safety Report 8389280-8 (Version None)
Quarter: 2012Q2

REPORT INFORMATION
  Report Type: 
  Country: None (occurrence: None)
  Receive Date: 20120528
  Receipt Date: 20120517
  Transmission Date: 20120825
  Serious: Yes (Hospitalization)
  Sender: FDA-Public Use
  Company Number: US-BRISTOL-MYERS SQUIBB COMPANY-16600041

PATIENT
  Age: 46 Year
  Sex: Male
  Weight: 92 kg

DRUGS (1)
  1. IPILIMUMAB [Suspect]
     Indication: MALIGNANT MELANOMA
     Dosage: LAST DOSE: 04MAY12 3MG/KG OVER 90MINS,Q3 WEEKS-4DOSES
     Route: 042
     Dates: start: 20120323

REACTIONS (5)
  - BLOOD BILIRUBIN INCREASED [None]
  - COUGH [None]
  - ALANINE AMINOTRANSFERASE INCREASED [None]
  - ASPARTATE AMINOTRANSFERASE INCREASED [None]
  - DYSPNOEA [None]
